FAERS Safety Report 11928109 (Version 1)
Quarter: 2016Q1

REPORT INFORMATION
  Report Type: Other
  Country: JP (occurrence: JP)
  Receive Date: 20160119
  Receipt Date: 20160119
  Transmission Date: 20160526
  Serious: Yes (Other)
  Sender: FDA-Public Use
  Company Number: JP-DEP_13405_2016

PATIENT
  Age: 34 Year
  Sex: Female
  Weight: 53 kg

DRUGS (11)
  1. SUGAMMADEX [Concomitant]
     Active Substance: SUGAMMADEX
  2. REMIFENTANIL [Concomitant]
     Active Substance: REMIFENTANIL
     Dosage: 0.5 MCG / KG^-1 / MIN^1
     Route: 042
  3. ROCURONIUM [Concomitant]
     Active Substance: ROCURONIUM BROMIDE
     Indication: HYPOTONIA
  4. DROPERIDOL. [Suspect]
     Active Substance: DROPERIDOL
     Dosage: PCA 2.5 MG;  RATE OF 1 ML / HR^-1, BOLUS AMOUNT OF 1 ML, AND RESERVOIR FILLING TIME OF 10 MINS
     Route: 042
  5. PROPOFOL. [Concomitant]
     Active Substance: PROPOFOL
     Indication: ANAESTHESIA
  6. FENTANYL. [Suspect]
     Active Substance: FENTANYL
     Indication: POSTOPERATIVE ANALGESIA
     Route: 042
  7. FENTANYL. [Suspect]
     Active Substance: FENTANYL
     Dosage: PCA 1.5 MG; RATE OF 1 ML / HR^-1, BOLUS AMOUNT OF 1 ML AND THE RESEVOIR FILLING TIME OF 10 MINS
     Route: 042
  8. METOCLOPRAMIDE. [Suspect]
     Active Substance: METOCLOPRAMIDE
     Indication: NAUSEA
     Dosage: ONCE
     Route: 042
  9. DROPERIDOL. [Suspect]
     Active Substance: DROPERIDOL
     Indication: PROPHYLAXIS OF NAUSEA AND VOMITING
     Dosage: ONCE
     Route: 042
  10. OXYGEN. [Concomitant]
     Active Substance: OXYGEN
     Dosage: 0.5 L / MIN^-1 MIXED WITH AIR 1.5 L / MIN^-1
  11. DESFLURANE. [Concomitant]
     Active Substance: DESFLURANE
     Dosage: WITHIN THE RANGE OF 3-5% INHALATION ANESTHETIC CONCENTRATION

REACTIONS (5)
  - Somnolence [Unknown]
  - Nausea [Recovered/Resolved]
  - Eye movement disorder [Recovered/Resolved]
  - Dystonia [Recovered/Resolved]
  - Epigastric discomfort [Recovered/Resolved]
